FAERS Safety Report 9884982 (Version 1)
Quarter: 2014Q1

REPORT INFORMATION
  Report Type: Spontaneous
  Country: US (occurrence: None)
  Receive Date: 20140207
  Receipt Date: 20140207
  Transmission Date: 20141002
  Serious: No
  Sender: FDA-Public Use
  Company Number: None

PATIENT
  Age: 52 Year
  Sex: Female
  Weight: 120 kg

DRUGS (1)
  1. HUMIRA 40 MG ABBVIE [Suspect]
     Indication: PROSTATIC SPECIFIC ANTIGEN
     Dosage: 40 MGS?QOW?057
     Dates: start: 20130919

REACTIONS (1)
  - Staphylococcal infection [None]
